FAERS Safety Report 18240213 (Version 1)
Quarter: 2020Q3

REPORT INFORMATION
  Report Type: Spontaneous
  Country: FR (occurrence: FR)
  Receive Date: 20200908
  Receipt Date: 20200908
  Transmission Date: 20201103
  Serious: Yes (Hospitalization, Other)
  Sender: FDA-Public Use
  Company Number: FR-AUROBINDO-AUR-APL-2020-046622

PATIENT
  Age: 77 Year
  Sex: Female

DRUGS (11)
  1. CEFTRIAXONE. [Suspect]
     Active Substance: CEFTRIAXONE
     Indication: PROPHYLAXIS
     Dosage: UNK
     Route: 065
  2. VORICONAZOLE. [Suspect]
     Active Substance: VORICONAZOLE
     Indication: PROPHYLAXIS
     Dosage: UNK
     Route: 065
  3. ECULIZUMAB [Suspect]
     Active Substance: ECULIZUMAB
     Dosage: UNK
     Route: 065
  4. PHENOXYMETHYLPENICILLIN [Suspect]
     Active Substance: PENICILLIN V
     Indication: VASCULITIS
     Dosage: UNK
     Route: 065
  5. RITUXIMAB. [Suspect]
     Active Substance: RITUXIMAB
     Dosage: UNK
     Route: 065
  6. CYCLOPHOSPHAMIDE. [Suspect]
     Active Substance: CYCLOPHOSPHAMIDE
     Indication: HAEMORRHAGE
     Dosage: UNK, SIX PULSES BY DAY
     Route: 042
  7. RITUXIMAB. [Suspect]
     Active Substance: RITUXIMAB
     Indication: HAEMORRHAGE
     Dosage: 375 MILLIGRAM/SQ. METER (AT DAY 1 AND DAY 7)
     Route: 065
  8. ECULIZUMAB [Suspect]
     Active Substance: ECULIZUMAB
     Indication: VASCULITIS
     Dosage: 500 MILLIGRAM, EVERY 6 MONTHS
     Route: 065
  9. CYCLOPHOSPHAMIDE. [Suspect]
     Active Substance: CYCLOPHOSPHAMIDE
     Indication: GLOMERULONEPHRITIS RAPIDLY PROGRESSIVE
     Dosage: UNK
     Route: 065
  10. RITUXIMAB. [Suspect]
     Active Substance: RITUXIMAB
     Indication: GLOMERULONEPHRITIS RAPIDLY PROGRESSIVE
     Dosage: 500 MILLIGRAM, EVERY 6 MONTHS
     Route: 065
  11. ECULIZUMAB [Suspect]
     Active Substance: ECULIZUMAB
     Dosage: UNK, 900MG PER WEEKLY FOR ONE MONTH, FOLLOWED BY 1200MG BI?MONTHLY
     Route: 065

REACTIONS (8)
  - Pneumonia bacterial [Unknown]
  - Intentional product use issue [Unknown]
  - Condition aggravated [Unknown]
  - Acute pulmonary oedema [Unknown]
  - Drug effective for unapproved indication [Unknown]
  - Off label use [Unknown]
  - Bronchopulmonary aspergillosis [Unknown]
  - Influenza [Unknown]
